FAERS Safety Report 10198490 (Version 1)
Quarter: 2014Q2

REPORT INFORMATION
  Report Type: Spontaneous
  Country: US (occurrence: US)
  Receive Date: 20140527
  Receipt Date: 20140527
  Transmission Date: 20141212
  Serious: No
  Sender: FDA-Public Use
  Company Number: US-NOVEN-13US007157

PATIENT
  Age: 7 Year
  Sex: Male
  Weight: 27.21 kg

DRUGS (1)
  1. DAYTRANA [Suspect]
     Indication: ATTENTION DEFICIT/HYPERACTIVITY DISORDER
     Dosage: 10 MG, UNK
     Route: 062
     Dates: start: 20130615, end: 20130615

REACTIONS (4)
  - Chest pain [Recovered/Resolved]
  - Dyskinesia [Recovered/Resolved]
  - Decreased appetite [Recovered/Resolved]
  - Logorrhoea [Recovered/Resolved]
